FAERS Safety Report 8771373 (Version 1)
Quarter: 2012Q4

REPORT INFORMATION
  Report Type: 
  Country: US (occurrence: US)
  Receive Date: 20120906
  Receipt Date: 20120906
  Transmission Date: 20130627
  Serious: Yes (Hospitalization, Other)
  Sender: FDA-Public Use
  Company Number: PHEH2012US017249

PATIENT
  Sex: Female

DRUGS (10)
  1. ZOMETA [Suspect]
  2. REVLIMID [Suspect]
     Indication: MULTIPLE MYELOMA
     Dosage: 10 mg, (5 mg alternating 10 mg)
     Route: 048
     Dates: start: 20100601
  3. ASPIRIN [Concomitant]
  4. CALCIUM D [Concomitant]
  5. GABAPENTIN [Concomitant]
  6. LORAZEPAM [Concomitant]
  7. TYLENOL [Concomitant]
  8. VITAMIN B6 [Concomitant]
  9. VITAMIN D3 [Concomitant]
  10. ZOLOFT [Concomitant]

REACTIONS (3)
  - Femur fracture [Unknown]
  - Foot fracture [Unknown]
  - Fall [Unknown]
